FAERS Safety Report 15655053 (Version 1)
Quarter: 2018Q4

REPORT INFORMATION
  Report Type: Spontaneous
  Country: US (occurrence: US)
  Receive Date: 20181126
  Receipt Date: 20181126
  Transmission Date: 20190205
  Serious: No
  Sender: FDA-Public Use
  Company Number: US-CIPLA LTD.-2018US21350

PATIENT

DRUGS (6)
  1. BUPROPION HYDROCHLORIDE XL [Suspect]
     Active Substance: BUPROPION HYDROCHLORIDE
     Dosage: 300 MG, QD
     Route: 048
  2. METADATE CD [Concomitant]
     Active Substance: METHYLPHENIDATE HYDROCHLORIDE
     Indication: ATTENTION DEFICIT/HYPERACTIVITY DISORDER
     Dosage: 30MG/ONCE IN THE MORNING AND 20MG /ONCE IN THE AFTERNOON
     Route: 065
  3. PRISTIQ EXTENDED-RELEASE [Concomitant]
     Active Substance: DESVENLAFAXINE SUCCINATE
     Indication: DEPRESSION
     Dosage: 100 MG, QD
     Route: 065
  4. SYNTHROID [Concomitant]
     Active Substance: LEVOTHYROXINE SODIUM
     Indication: HYPOTHYROIDISM
     Dosage: UNK, QD
     Route: 065
  5. BUPROPION HYDROCHLORIDE XL [Suspect]
     Active Substance: BUPROPION HYDROCHLORIDE
     Indication: DEPRESSION
     Dosage: 300 MG, MANUFACTURED BY PAR AKA ANCHEN PHARMACY
     Route: 065
  6. BUPROPION HYDROCHLORIDE XL [Suspect]
     Active Substance: BUPROPION HYDROCHLORIDE
     Dosage: 150 MG, QD
     Route: 048
     Dates: start: 20180721

REACTIONS (15)
  - Headache [Recovered/Resolved]
  - Initial insomnia [Recovered/Resolved]
  - Sleep disorder [Recovered/Resolved]
  - Altered state of consciousness [Recovered/Resolved]
  - Disturbance in attention [Recovered/Resolved]
  - Abulia [Recovered/Resolved]
  - Fatigue [Recovered/Resolved]
  - Product substitution issue [Unknown]
  - Unevaluable event [Recovered/Resolved]
  - Drug ineffective [Unknown]
  - Increased appetite [Recovered/Resolved]
  - Hunger [Recovered/Resolved]
  - Depressed mood [Recovered/Resolved]
  - Asthenia [Recovered/Resolved]
  - Memory impairment [Recovered/Resolved]
